FAERS Safety Report 6394769-7 (Version None)
Quarter: 2009Q4

REPORT INFORMATION
  Report Type: 
  Country: None (occurrence: None)
  Receive Date: 20091009
  Receipt Date: 20090817
  Transmission Date: 20100525
  Serious: No
  Sender: FDA-Public Use
  Company Number: US-BAYER-200930569NA

PATIENT
  Sex: Female

DRUGS (2)
  1. MIRENA [Suspect]
     Indication: DRUG USE FOR UNKNOWN INDICATION
     Dosage: MIRENA REPLACED AFTER 5 YEARS. CANNOT RECALL IF IT WAS 2006 OR 2007.
     Route: 015
     Dates: end: 20060101
  2. MIRENA [Suspect]
     Dosage: SECOND MIRENA PLACED IN (2006 OR 2007)
     Route: 065
     Dates: start: 20060101

REACTIONS (3)
  - AMENORRHOEA [None]
  - BREAST PAIN [None]
  - NAUSEA [None]
